FAERS Safety Report 11871029 (Version 1)
Quarter: 2015Q4

REPORT INFORMATION
  Report Type: Spontaneous
  Country: CH (occurrence: CH)
  Receive Date: 20151228
  Receipt Date: 20151228
  Transmission Date: 20160305
  Serious: Yes (Other)
  Sender: FDA-Public Use
  Company Number: CH-PFIZER INC-2015451675

PATIENT
  Age: 20 Year
  Sex: Female
  Weight: 53 kg

DRUGS (22)
  1. CLOFAZIMINE [Concomitant]
     Active Substance: CLOFAZIMINE
     Indication: MYCOBACTERIUM ABSCESSUS INFECTION
     Dosage: UNK
     Route: 048
  2. PREDNISON [Concomitant]
     Active Substance: PREDNISONE
     Dosage: 10 MG, 1X/DAY
     Route: 048
  3. PARACETAMOL [Concomitant]
     Active Substance: ACETAMINOPHEN
     Route: 048
  4. RELVAR ELLIPTA [Concomitant]
     Active Substance: FLUTICASONE FUROATE\VILANTEROL TRIFENATATE
     Dosage: UNK
     Route: 055
  5. IMUKIN [Concomitant]
     Active Substance: INTERFERON GAMMA
     Dosage: 50 PG, 3X/WEEK
     Route: 058
     Dates: start: 20151110
  6. AMIKACIN [Concomitant]
     Active Substance: AMIKACIN
     Indication: MYCOBACTERIUM ABSCESSUS INFECTION
     Dosage: 750 MG, 1X/DAY
     Route: 041
     Dates: start: 20151030
  7. SPORANOX [Concomitant]
     Active Substance: ITRACONAZOLE
     Dosage: 100 MG, 2X/DAY
     Route: 048
  8. ZOFRAN [Concomitant]
     Active Substance: ONDANSETRON HYDROCHLORIDE
     Dosage: 4 MG, UNK
     Route: 048
  9. SINGULAIR [Concomitant]
     Active Substance: MONTELUKAST SODIUM
     Dosage: 10 MG, 1X/DAY
     Route: 048
  10. MINOCIN [Concomitant]
     Active Substance: MINOCYCLINE HYDROCHLORIDE
     Dosage: 100 MG, 2X/DAY
     Route: 048
     Dates: start: 20151110
  11. RINOSEDIN [Concomitant]
     Dosage: UNK
     Route: 045
  12. TIENAM [Concomitant]
     Active Substance: CILASTATIN SODIUM\IMIPENEM
     Dosage: 1000 MG, 4X/DAY
     Route: 041
     Dates: start: 20151030
  13. NOVORAPID [Concomitant]
     Active Substance: INSULIN ASPART
     Indication: DIABETES MELLITUS
     Dosage: UNK
     Route: 058
  14. CLEXANE [Concomitant]
     Active Substance: ENOXAPARIN SODIUM
     Dosage: 40 MG, 1X/DAY
     Route: 058
  15. OXYNORM [Concomitant]
     Active Substance: OXYCODONE HYDROCHLORIDE
     Dosage: UNK
     Route: 048
  16. AQUADEKS /07679501/ [Concomitant]
     Dosage: UNK
     Route: 048
  17. MUCOCLEAR /00075401/ [Concomitant]
     Dosage: UNK
     Route: 055
  18. SEEBRI [Concomitant]
     Active Substance: GLYCOPYRRONIUM
     Dosage: UNK
     Route: 055
  19. TYGACIL [Suspect]
     Active Substance: TIGECYCLINE
     Indication: MYCOBACTERIUM ABSCESSUS INFECTION
     Dosage: 50 MG, 2X/DAY
     Route: 041
     Dates: start: 20151030, end: 20151112
  20. KONAKION [Concomitant]
     Active Substance: PHYTONADIONE
     Indication: COAGULOPATHY
     Dosage: UNK
     Route: 048
     Dates: start: 20151106, end: 20151111
  21. TEMESTA /00273201/ [Concomitant]
     Active Substance: LORAZEPAM
     Dosage: 1 MG, UNK
     Route: 048
  22. D3 CALCIO [Concomitant]
     Dosage: UNK

REACTIONS (4)
  - International normalised ratio increased [Recovered/Resolved]
  - Coagulopathy [Recovered/Resolved]
  - Activated partial thromboplastin time prolonged [Recovering/Resolving]
  - Prothrombin time prolonged [Recovered/Resolved]

NARRATIVE: CASE EVENT DATE: 20151102
